APPROVED DRUG PRODUCT: TAZICEF
Active Ingredient: CEFTAZIDIME
Strength: 500MG/VIAL
Dosage Form/Route: INJECTABLE;INJECTION
Application: A062662 | Product #001
Applicant: HOSPIRA INC
Approved: Mar 6, 1986 | RLD: No | RS: No | Type: DISCN